FAERS Safety Report 8294749-0 (Version None)
Quarter: 2012Q2

REPORT INFORMATION
  Report Type: 
  Country: None (occurrence: None)
  Receive Date: 20120418
  Receipt Date: 20120413
  Transmission Date: 20120825
  Serious: Yes (Other)
  Sender: FDA-Public Use
  Company Number: US-PFIZER INC-2012080942

PATIENT
  Sex: Female
  Weight: 99.773 kg

DRUGS (11)
  1. ABILIFY [Concomitant]
     Indication: DEPRESSION
     Dosage: 10 MG, UNK
  2. NAPROXEN [Concomitant]
     Indication: SWELLING
     Dosage: 250 MG, UNK
  3. AMBIEN [Concomitant]
     Indication: SLEEP DISORDER
     Dosage: 10 MG, UNK
  4. ACETYLSALICYLIC ACID [Concomitant]
     Indication: CARDIAC DISORDER
     Dosage: 81 MG, UNK
  5. NEURONTIN [Suspect]
     Indication: ARTHRITIS
     Dosage: 600 MG, 3X/DAY
     Route: 048
     Dates: end: 20111201
  6. OMEPRAZOLE [Concomitant]
     Indication: GASTROOESOPHAGEAL REFLUX DISEASE
     Dosage: 20 MG, UNK
  7. METOPROLOL [Concomitant]
     Indication: HYPERTENSION
     Dosage: 50 MG, 2X/DAY
  8. SIMVASTATIN [Concomitant]
     Indication: BLOOD CHOLESTEROL INCREASED
     Dosage: 20 MG, UNK
  9. CYMBALTA [Concomitant]
     Indication: DEPRESSION
     Dosage: 60 MG, UNK
  10. ARTANE [Concomitant]
     Indication: DEPRESSION
     Dosage: 2 MG, UNK
  11. NEURONTIN [Suspect]
     Indication: CARPAL TUNNEL SYNDROME
     Dosage: 400 MG, 3X/DAY
     Route: 048
     Dates: start: 20110101

REACTIONS (4)
  - PAIN [None]
  - NAUSEA [None]
  - CEREBROVASCULAR ACCIDENT [None]
  - DIARRHOEA [None]
